FAERS Safety Report 5246150-1 (Version None)
Quarter: 2007Q1

REPORT INFORMATION
  Report Type: 
  Country: None (occurrence: None)
  Receive Date: 20070220
  Receipt Date: 20070206
  Transmission Date: 20070707
  Serious: Yes (Hospitalization)
  Sender: FDA-Public Use
  Company Number: 2007020002

PATIENT
  Age: 50 Year
  Sex: Female

DRUGS (1)
  1. D-PENICILLAMINE [Suspect]
     Indication: SCLERODERMA
     Dates: start: 19970101, end: 20040401

REACTIONS (3)
  - ASTHENIA [None]
  - CHRONIC MYELOID LEUKAEMIA [None]
  - WEIGHT DECREASED [None]
